FAERS Safety Report 4595843-8 (Version None)
Quarter: 2005Q1

REPORT INFORMATION
  Report Type: 
  Country: None (occurrence: None)
  Receive Date: 20050224
  Receipt Date: 20050215
  Transmission Date: 20050727
  Serious: Yes (Other)
  Sender: FDA-Public Use
  Company Number: 212466

PATIENT
  Age: 62 Year
  Sex: Male
  Weight: 83 kg

DRUGS (3)
  1. TNKASE [Suspect]
     Indication: MYOCARDIAL INFARCTION
     Dosage: SINGLE, IV BOLUS
     Route: 040
     Dates: start: 20041124
  2. ENOXAPARIN SODIUM [Suspect]
     Dates: start: 20041124
  3. ABCIXIMAB (ABCIXIMAB) [Suspect]
     Dosage: INTRAVENOUS
     Route: 042
     Dates: start: 20041124

REACTIONS (6)
  - CARDIOGENIC SHOCK [None]
  - CYTOLYTIC HEPATITIS [None]
  - GASTRIC HAEMORRHAGE [None]
  - MULTI-ORGAN FAILURE [None]
  - PNEUMONIA [None]
  - RENAL FAILURE ACUTE [None]
